FAERS Safety Report 16293524 (Version 7)
Quarter: 2022Q2

REPORT INFORMATION
  Report Type: Spontaneous
  Country: US (occurrence: US)
  Receive Date: 20190509
  Receipt Date: 20220608
  Transmission Date: 20220720
  Serious: Yes (Other)
  Sender: FDA-Public Use
  Company Number: US-SA-2019SA126269

PATIENT
  Age: 43 Year
  Sex: Male

DRUGS (4)
  1. ELOCTATE [Suspect]
     Active Substance: (1-743)-(1638-2332)-BLOOD-COAGULATION FACTOR VIII (SYNTHETIC HUMAN) FUSION PROTEIN WITH IMMUNOGLOBUL
     Dosage: 3300 IU
     Route: 042
  2. ELOCTATE [Suspect]
     Active Substance: (1-743)-(1638-2332)-BLOOD-COAGULATION FACTOR VIII (SYNTHETIC HUMAN) FUSION PROTEIN WITH IMMUNOGLOBUL
     Dosage: 3300 IU
     Route: 042
  3. ELOCTATE [Suspect]
     Active Substance: (1-743)-(1638-2332)-BLOOD-COAGULATION FACTOR VIII (SYNTHETIC HUMAN) FUSION PROTEIN WITH IMMUNOGLOBUL
     Dosage: 4000 IU, EVERY 5 DAYS AND PRN
     Route: 042
  4. ELOCTATE [Suspect]
     Active Substance: (1-743)-(1638-2332)-BLOOD-COAGULATION FACTOR VIII (SYNTHETIC HUMAN) FUSION PROTEIN WITH IMMUNOGLOBUL
     Dosage: 4000 IU, EVERY 5 DAYS AND PRN
     Route: 042

REACTIONS (9)
  - Haemorrhage [Unknown]
  - Haemorrhage [Recovered/Resolved]
  - Muscle rupture [Unknown]
  - Haemorrhage [Recovered/Resolved]
  - Oral disorder [Unknown]
  - Gastrointestinal disorder [Unknown]
  - Contusion [Unknown]
  - Joint injury [Unknown]
  - Dysphonia [Unknown]

NARRATIVE: CASE EVENT DATE: 20190416
